FAERS Safety Report 14382943 (Version 1)
Quarter: 2018Q1

REPORT INFORMATION
  Report Type: Spontaneous
  Country: NL (occurrence: NL)
  Receive Date: 20180114
  Receipt Date: 20180114
  Transmission Date: 20180509
  Serious: Yes (Other)
  Sender: FDA-Public Use
  Company Number: NL-TEVA-2018-NL-843667

PATIENT
  Age: 68 Year
  Sex: Male

DRUGS (5)
  1. METHOTREXATE. [Suspect]
     Active Substance: METHOTREXATE
     Indication: METASTASES TO MENINGES
     Dosage: 12 MG EVERY 2 WEEKS
     Route: 037
  2. ERBITUX [Suspect]
     Active Substance: CETUXIMAB
     Indication: METASTASES TO MENINGES
     Dosage: LOADING DOSE 400 MG/M2
     Route: 065
  3. DEXAMETHASONE. [Concomitant]
     Active Substance: DEXAMETHASONE
     Dosage: 4 MILLIGRAM DAILY;
     Route: 048
  4. ERBITUX [Suspect]
     Active Substance: CETUXIMAB
     Dosage: WEEKLY STANDARD DOSE OF 250 MG/M2
     Route: 065
  5. DEPOCYT [Suspect]
     Active Substance: CYTARABINE
     Indication: METASTASES TO MENINGES
     Dosage: 50 MG EVERY 2 WEEKS
     Route: 037

REACTIONS (3)
  - Meningitis chemical [Unknown]
  - Rash [Unknown]
  - Dehydration [Unknown]
